FAERS Safety Report 6068676-3 (Version None)
Quarter: 2009Q1

REPORT INFORMATION
  Report Type: 
  Country: None (occurrence: None)
  Receive Date: 20090206
  Receipt Date: 20090204
  Transmission Date: 20090719
  Serious: Yes (Hospitalization)
  Sender: FDA-Public Use
  Company Number: B0536685A

PATIENT
  Age: 81 Year
  Sex: Female

DRUGS (7)
  1. VALTREX [Suspect]
     Indication: HERPES ZOSTER
     Dosage: 1000MG PER DAY
     Route: 048
     Dates: start: 20080905, end: 20080905
  2. VALTREX [Suspect]
     Dosage: 1000MG TWICE PER DAY
     Route: 048
     Dates: start: 20080906, end: 20080907
  3. ZOVIRAX [Concomitant]
     Indication: HERPES ZOSTER
     Route: 061
     Dates: start: 20080829, end: 20080901
  4. DIOVAN [Concomitant]
     Indication: HYPERTENSION
     Dosage: 0MG PER DAY
     Route: 048
     Dates: start: 20080827
  5. ADALAT CC [Concomitant]
     Indication: HYPERTENSION
     Dosage: 20MG PER DAY
     Route: 048
     Dates: start: 20080827, end: 20080910
  6. MAGMITT [Concomitant]
     Indication: CONSTIPATION
     Dosage: 990MG PER DAY
     Route: 048
     Dates: start: 20080827
  7. BUP-4 [Concomitant]
     Indication: NEUROGENIC BLADDER
     Dosage: 20MG PER DAY
     Route: 048
     Dates: start: 20080827

REACTIONS (5)
  - ASTHENIA [None]
  - BLOOD CREATININE INCREASED [None]
  - BLOOD UREA INCREASED [None]
  - DYSPHAGIA [None]
  - RENAL FAILURE ACUTE [None]
